FAERS Safety Report 26036782 (Version 1)
Quarter: 2025Q4

REPORT INFORMATION
  Report Type: Spontaneous
  Country: US (occurrence: US)
  Receive Date: 20251112
  Receipt Date: 20251112
  Transmission Date: 20260118
  Serious: No
  Sender: PARATEK PHARMACEUTICALS
  Company Number: US-PARATEK PHARMACEUTICALS, INC.-2024PTK00972

PATIENT
  Age: 35 Year
  Sex: Male

DRUGS (1)
  1. NUZYRA [Suspect]
     Active Substance: OMADACYCLINE
     Dosage: 450 MG, 1X/DAY
     Route: 048
     Dates: start: 20241021, end: 20241021

REACTIONS (1)
  - Discoloured vomit [Recovered/Resolved]

NARRATIVE: CASE EVENT DATE: 20241021
